FAERS Safety Report 6567969-0 (Version None)
Quarter: 2010Q1

REPORT INFORMATION
  Report Type: 
  Country: None (occurrence: None)
  Receive Date: 20100203
  Receipt Date: 20091230
  Transmission Date: 20100710
  Serious: Yes (Life-Threatening, Hospitalization)
  Sender: FDA-Public Use
  Company Number: US-ASTRAZENECA-2010SE04120

PATIENT
  Age: 87 Year
  Sex: Female

DRUGS (3)
  1. PRILOSEC [Suspect]
     Route: 048
  2. PRILOSEC OTC [Suspect]
     Route: 048
  3. INVESTIGATIONAL DRUG [Suspect]
     Dates: start: 20091211

REACTIONS (7)
  - ALLODYNIA [None]
  - CYANOSIS [None]
  - HYPOXIC ENCEPHALOPATHY [None]
  - PNEUMONIA [None]
  - RENAL FAILURE ACUTE [None]
  - SEPTIC SHOCK [None]
  - UROSEPSIS [None]
